FAERS Safety Report 10224152 (Version 3)
Quarter: 2014Q2

REPORT INFORMATION
  Report Type: Report from Study
  Country: PT (occurrence: PT)
  Receive Date: 20140609
  Receipt Date: 20140623
  Transmission Date: 20141212
  Serious: Yes (Other)
  Sender: FDA-Public Use
  Company Number: PHHY2014PT058606

PATIENT
  Age: 27 Year
  Sex: Male

DRUGS (1)
  1. EXTAVIA [Suspect]
     Indication: MULTIPLE SCLEROSIS
     Dosage: 250 UG, QOD
     Route: 058
     Dates: start: 20130901

REACTIONS (10)
  - Multiple sclerosis relapse [Recovering/Resolving]
  - Gait disturbance [Recovering/Resolving]
  - Feeling of body temperature change [Recovering/Resolving]
  - Paraesthesia [Recovering/Resolving]
  - Anaesthesia [Recovering/Resolving]
  - Hypoaesthesia [Not Recovered/Not Resolved]
  - Asthenia [Recovering/Resolving]
  - Urinary retention [Recovering/Resolving]
  - Coordination abnormal [Recovering/Resolving]
  - Balance disorder [Recovering/Resolving]
